FAERS Safety Report 8994791 (Version 1)
Quarter: 2012Q4

REPORT INFORMATION
  Report Type: Spontaneous
  Country: US (occurrence: None)
  Receive Date: 20121228
  Receipt Date: 20121228
  Transmission Date: 20130627
  Serious: No
  Sender: FDA-Public Use
  Company Number: None

PATIENT
  Sex: Female
  Weight: 63.05 kg

DRUGS (3)
  1. VESICARE [Suspect]
     Indication: RESPIRATORY OBSTRUCTION UNSPECIFIED
     Route: 048
  2. VESICARE [Suspect]
     Indication: DRY MOUTH
     Route: 048
  3. VESICARE [Suspect]
     Indication: COUGH
     Route: 048

REACTIONS (4)
  - Cough [None]
  - Dyspnoea [None]
  - Dry mouth [None]
  - Dry skin [None]
